FAERS Safety Report 9503900 (Version 1)
Quarter: 2013Q3

REPORT INFORMATION
  Report Type: Spontaneous
  Country: US (occurrence: None)
  Receive Date: 20130905
  Receipt Date: 20130905
  Transmission Date: 20140515
  Serious: Yes (Disabling)
  Sender: FDA-Public Use
  Company Number: None

PATIENT
  Age: 69 Year
  Sex: Male
  Weight: 83.92 kg

DRUGS (1)
  1. CRESTOR [Suspect]
     Indication: BLOOD CHOLESTEROL INCREASED
     Dosage: ?  ONCE DAILY --

REACTIONS (5)
  - Arthralgia [None]
  - Asthenia [None]
  - Quality of life decreased [None]
  - Arthralgia [None]
  - Photosensitivity reaction [None]
